FAERS Safety Report 5805324-9 (Version None)
Quarter: 2008Q3

REPORT INFORMATION
  Report Type: 
  Country: None (occurrence: None)
  Receive Date: 20080709
  Receipt Date: 20080701
  Transmission Date: 20090109
  Serious: Yes (Other)
  Sender: FDA-Public Use
  Company Number: US-ELI_LILLY_AND_COMPANY-US200807000781

PATIENT
  Sex: Female

DRUGS (3)
  1. HUMULIN N [Suspect]
  2. HUMULIN N [Suspect]
  3. HUMULIN 70/30 [Suspect]
     Dates: start: 20061201

REACTIONS (2)
  - CEREBROVASCULAR ACCIDENT [None]
  - HIP SURGERY [None]
